FAERS Safety Report 10511117 (Version 1)
Quarter: 2014Q4

REPORT INFORMATION
  Report Type: Spontaneous
  Country: BE (occurrence: None)
  Receive Date: 20141008
  Receipt Date: 20141008
  Transmission Date: 20150528
  Serious: Yes (Hospitalization)
  Sender: FDA-Public Use
  Company Number: 2014SCAL000144

PATIENT
  Age: 61 Year
  Sex: Female

DRUGS (10)
  1. LITHIUM CARBONATE (LITHIUM CARBONATE) [Suspect]
     Active Substance: LITHIUM CARBONATE
     Indication: BIPOLAR DISORDER
  2. SERTRALINE EG (SERTRALINE HYDROCHLORIDE) [Concomitant]
  3. ZYPREXA [Concomitant]
     Active Substance: OLANZAPINE
  4. NOVOMIX (INSULIN ASPART, INSULIN ASPART PROTAMINE (CRYSTALLINE)) [Concomitant]
  5. MANIPREX (LITHIUM CARBONATE) [Concomitant]
  6. TRAZODONE [Concomitant]
     Active Substance: TRAZODONE HYDROCHLORIDE
  7. VOLTAREN [Suspect]
     Active Substance: DICLOFENAC SODIUM
     Indication: PROCEDURAL PAIN
  8. TEMESTA (LORAZEPAM) [Concomitant]
     Active Substance: LORAZEPAM
  9. FENOGAL LIDOSE (FENOFIBRATE) [Concomitant]
  10. IBUPROFEN (IBUPROFEN) [Suspect]
     Active Substance: IBUPROFEN
     Indication: PRODUCT USED FOR UNKNOWN INDICATION

REACTIONS (11)
  - Dehydration [None]
  - Hyperglycaemia [None]
  - Agitation [None]
  - Restlessness [None]
  - Loss of consciousness [None]
  - Acute kidney injury [None]
  - Hypoglycaemia [None]
  - Hypercalcaemia [None]
  - Toxicity to various agents [None]
  - Drug interaction [None]
  - Blood sodium increased [None]
